FAERS Safety Report 22068149 (Version 3)
Quarter: 2023Q2

REPORT INFORMATION
  Report Type: Spontaneous
  Country: US (occurrence: US)
  Receive Date: 20230307
  Receipt Date: 20230412
  Transmission Date: 20230721
  Serious: Yes (Hospitalization, Other)
  Sender: FDA-Public Use
  Company Number: US-UNITED THERAPEUTICS-UNT-2023-005710

PATIENT
  Age: 49 Year
  Sex: Female
  Weight: 82.086 kg

DRUGS (3)
  1. REMODULIN [Suspect]
     Active Substance: TREPROSTINIL
     Indication: Pulmonary arterial hypertension
     Dosage: 0.040 ?G/KG, CONTINUING
     Route: 058
  2. REMODULIN [Suspect]
     Active Substance: TREPROSTINIL
     Dosage: UNK, CONTINUING
     Route: 058
     Dates: start: 20181019
  3. TADALAFIL [Concomitant]
     Active Substance: TADALAFIL
     Indication: Product used for unknown indication
     Dosage: UNK
     Route: 065

REACTIONS (8)
  - Dyspnoea [Unknown]
  - Device malfunction [Unknown]
  - Cardiac disorder [Unknown]
  - Heart rate abnormal [Unknown]
  - Anxiety [Recovered/Resolved]
  - Hyperventilation [Recovered/Resolved]
  - Device issue [Unknown]
  - Device failure [Unknown]

NARRATIVE: CASE EVENT DATE: 20230201
